FAERS Safety Report 4294056-7 (Version None)
Quarter: 2004Q1

REPORT INFORMATION
  Report Type: 
  Country: None (occurrence: None)
  Receive Date: 20040210
  Receipt Date: 20040203
  Transmission Date: 20041129
  Serious: Yes (Death)
  Sender: FDA-Public Use
  Company Number: US-JNJFOC-20040200874

PATIENT
  Age: 56 Year
  Sex: Male

DRUGS (1)
  1. DURAGESIC [Suspect]
     Indication: POST PROCEDURAL PAIN
     Dosage: 75 UG/HR, TRANSDERMAL
     Route: 062
     Dates: start: 19991201, end: 19991201

REACTIONS (2)
  - CORONARY ARTERY ATHEROSCLEROSIS [None]
  - HYPERTENSION [None]
